FAERS Safety Report 10263601 (Version 1)
Quarter: 2014Q2

REPORT INFORMATION
  Report Type: Spontaneous
  Country: GR (occurrence: GR)
  Receive Date: 20140626
  Receipt Date: 20140626
  Transmission Date: 20141212
  Serious: Yes (Other)
  Sender: FDA-Public Use
  Company Number: PHHY2014GR078477

PATIENT
  Age: 36 Year
  Sex: Female

DRUGS (3)
  1. SIRDALUD [Suspect]
     Indication: MUSCLE SPASTICITY
     Dosage: 4 MG, UNK
     Dates: start: 20140623, end: 20140623
  2. GILENYA [Interacting]
     Indication: MULTIPLE SCLEROSIS
     Dosage: UNK UKN, UNK
  3. PRAMIDE//METOCLOPRAMIDE HYDROCHLORIDE [Concomitant]
     Indication: MIGRAINE PROPHYLAXIS
     Dosage: UNK UKN, UNK

REACTIONS (5)
  - Loss of consciousness [Recovered/Resolved]
  - Bradycardia [Recovered/Resolved]
  - Lethargy [Recovered/Resolved]
  - Drug interaction [Recovered/Resolved]
  - Hypotension [Recovered/Resolved]
